FAERS Safety Report 12631870 (Version 2)
Quarter: 2016Q3

REPORT INFORMATION
  Report Type: Spontaneous
  Country: US (occurrence: US)
  Receive Date: 20160808
  Receipt Date: 20160808
  Transmission Date: 20161109
  Serious: No
  Sender: FDA-Public Use
  Company Number: US-BEH-2016061291

PATIENT
  Sex: Male
  Weight: 58 kg

DRUGS (20)
  1. VENTOLIN [Concomitant]
     Active Substance: ALBUTEROL SULFATE
  2. HIZENTRA [Suspect]
     Active Substance: HUMAN IMMUNOGLOBULIN G
     Indication: SELECTIVE IGG SUBCLASS DEFICIENCY
     Route: 058
  3. IPRATROPIUM-ALBUTEROL [Concomitant]
     Active Substance: ALBUTEROL\IPRATROPIUM
  4. TRAMADOL. [Concomitant]
     Active Substance: TRAMADOL
  5. NEXIUM [Concomitant]
     Active Substance: ESOMEPRAZOLE MAGNESIUM
  6. VITAMIN D3 [Concomitant]
     Active Substance: CHOLECALCIFEROL
  7. EPIPEN [Concomitant]
     Active Substance: EPINEPHRINE
  8. DALIRESP [Concomitant]
     Active Substance: ROFLUMILAST
  9. ASPIRIN. [Concomitant]
     Active Substance: ASPIRIN
  10. OXYCODONE [Concomitant]
     Active Substance: OXYCODONE
  11. MEDICATED DRESSINGS [Suspect]
     Active Substance: UNSPECIFIED INGREDIENT
  12. ACETAMINOPHEN. [Concomitant]
     Active Substance: ACETAMINOPHEN
  13. FUROSEMIDE. [Concomitant]
     Active Substance: FUROSEMIDE
  14. LISINOPRIL. [Concomitant]
     Active Substance: LISINOPRIL
  15. FERROUS SULFATE. [Concomitant]
     Active Substance: FERROUS SULFATE
  16. GABAPENTIN. [Concomitant]
     Active Substance: GABAPENTIN
  17. DIPHENHYDRAMINE. [Concomitant]
     Active Substance: DIPHENHYDRAMINE
  18. ATORVASTATIN [Concomitant]
     Active Substance: ATORVASTATIN
  19. BUPROPION XL [Concomitant]
     Active Substance: BUPROPION
  20. ZYRTEC [Concomitant]
     Active Substance: CETIRIZINE HYDROCHLORIDE

REACTIONS (3)
  - Skin irritation [Unknown]
  - Infusion site pain [Unknown]
  - Sinusitis [Unknown]
